FAERS Safety Report 11546248 (Version 2)
Quarter: 2015Q3

REPORT INFORMATION
  Report Type: Spontaneous
  Country: VE (occurrence: VE)
  Receive Date: 20150924
  Receipt Date: 20150928
  Transmission Date: 20151125
  Serious: Yes (Hospitalization)
  Sender: FDA-Public Use
  Company Number: PHHY2015VE114754

PATIENT
  Age: 75 Year
  Sex: Male

DRUGS (5)
  1. FORADIL [Suspect]
     Active Substance: FORMOTEROL FUMARATE
     Indication: RESPIRATORY DISORDER
     Dosage: UNK UNK, BID
     Route: 055
     Dates: start: 20100503
  2. CALCIUM [Concomitant]
     Active Substance: CALCIUM
     Indication: BONE DISORDER
     Dosage: 500 MG, QD
     Route: 065
  3. VITAMIN C [Concomitant]
     Active Substance: ASCORBIC ACID
     Indication: PRODUCT USED FOR UNKNOWN INDICATION
     Dosage: 100 MG, QD
     Route: 065
  4. MIFLONIDE [Suspect]
     Active Substance: BUDESONIDE
     Indication: RESPIRATORY DISORDER
     Dosage: UNK UNK, BID
     Route: 055
     Dates: start: 20100503
  5. GLUCOFAGE [Concomitant]
     Indication: DIABETES MELLITUS
     Dosage: 500 MG, QD
     Route: 065
     Dates: start: 20100503

REACTIONS (5)
  - Obstructive airways disorder [Unknown]
  - Urinary tract disorder [Unknown]
  - Malaise [Unknown]
  - Cough [Unknown]
  - Off label use [Unknown]

NARRATIVE: CASE EVENT DATE: 20100503
